FAERS Safety Report 23315976 (Version 1)
Quarter: 2023Q4

REPORT INFORMATION
  Report Type: Spontaneous
  Country: GB (occurrence: GB)
  Receive Date: 20231219
  Receipt Date: 20231219
  Transmission Date: 20240110
  Serious: Yes (Life-Threatening, Hospitalization, Other)
  Sender: FDA-Public Use
  Company Number: GB-MLMSERVICE-20231204-4705874-1

PATIENT

DRUGS (6)
  1. ATOMOXETINE [Interacting]
     Active Substance: ATOMOXETINE
     Indication: Product used for unknown indication
     Dosage: UNK (LONG-TERM MEDICATIONS)
     Route: 065
  2. LAMOTRIGINE [Interacting]
     Active Substance: LAMOTRIGINE
     Indication: Product used for unknown indication
     Dosage: UNK (DOSE BEING INCREASED)
     Route: 065
  3. LAMOTRIGINE [Interacting]
     Active Substance: LAMOTRIGINE
     Dosage: UNK
     Route: 065
  4. MELATONIN [Concomitant]
     Active Substance: MELATONIN
     Indication: Product used for unknown indication
     Dosage: UNK (LONG-TERM MEDICATIONS)
     Route: 065
  5. METHYLPHENIDATE [Concomitant]
     Active Substance: METHYLPHENIDATE
     Indication: Product used for unknown indication
     Dosage: UNK (LONG-TERM MEDICATIONS)
     Route: 065
  6. RISPERIDONE [Concomitant]
     Active Substance: RISPERIDONE
     Indication: Product used for unknown indication
     Dosage: UNK (LONG-TERM MEDICATIONS)
     Route: 065

REACTIONS (7)
  - Intracranial pressure increased [Recovered/Resolved]
  - Hepatic necrosis [Recovered/Resolved]
  - Hepatic encephalopathy [Recovered/Resolved]
  - Drug interaction [Recovered/Resolved]
  - Drug-induced liver injury [Recovered/Resolved]
  - Acute hepatic failure [Recovered/Resolved]
  - Hypertension [Recovered/Resolved]
